FAERS Safety Report 8953932 (Version 3)
Quarter: 2013Q1

REPORT INFORMATION
  Report Type: Spontaneous
  Country: JP (occurrence: JP)
  Receive Date: 20121206
  Receipt Date: 20130205
  Transmission Date: 20140127
  Serious: Yes (Death)
  Sender: FDA-Public Use
  Company Number: JP-GILEAD-2012-0065811

PATIENT
  Age: 80 Year
  Sex: Male

DRUGS (13)
  1. AMBRISENTAN [Suspect]
     Indication: PULMONARY HYPERTENSION
     Dosage: 4IUAX PER DAY
     Route: 048
  2. FEBURIC [Concomitant]
     Route: 048
  3. FEBURIC [Concomitant]
     Route: 048
  4. TANATRIL [Concomitant]
     Route: 048
  5. TANATRIL [Concomitant]
     Route: 048
  6. BREDININ [Concomitant]
     Route: 048
  7. BREDININ [Concomitant]
     Route: 048
  8. RECALBON [Concomitant]
     Route: 048
  9. RECALBON [Concomitant]
     Route: 048
  10. NORVASC [Concomitant]
     Route: 048
  11. NORVASC [Concomitant]
     Route: 048
  12. EPADEL [Concomitant]
     Route: 048
  13. EPADEL [Concomitant]
     Route: 048

REACTIONS (1)
  - Death [Fatal]
